FAERS Safety Report 11874678 (Version 2)
Quarter: 2016Q1

REPORT INFORMATION
  Report Type: Spontaneous
  Country: US (occurrence: US)
  Receive Date: 20151229
  Receipt Date: 20160204
  Transmission Date: 20160526
  Serious: Yes (Hospitalization)
  Sender: FDA-Public Use
  Company Number: US-AUROBINDO-AUR-APL-2015-11717

PATIENT
  Sex: Female
  Weight: 90.72 kg

DRUGS (2)
  1. METOPROLOL. [Suspect]
     Active Substance: METOPROLOL
     Indication: ATRIAL FIBRILLATION
     Route: 065
  2. COUMADIN [Concomitant]
     Active Substance: WARFARIN SODIUM
     Indication: THROMBOSIS PROPHYLAXIS
     Dosage: 5MG ONE DAY AND 2.5MG THE OTHER, ALTER

REACTIONS (4)
  - Hypotension [Unknown]
  - Malaise [Unknown]
  - Heart rate increased [Unknown]
  - Drug ineffective [Unknown]
